FAERS Safety Report 14686079 (Version 1)
Quarter: 2018Q1

REPORT INFORMATION
  Report Type: Spontaneous
  Country: CN (occurrence: CN)
  Receive Date: 20180327
  Receipt Date: 20180327
  Transmission Date: 20180509
  Serious: Yes (Other)
  Sender: FDA-Public Use
  Company Number: CN-JNJFOC-20180333573

PATIENT
  Age: 1 Year
  Sex: Male
  Weight: 9 kg

DRUGS (2)
  1. LAMOTRIGINE. [Suspect]
     Active Substance: LAMOTRIGINE
     Indication: EPILEPSY
     Route: 048
     Dates: start: 20170628, end: 20171014
  2. TOPAMAX [Suspect]
     Active Substance: TOPIRAMATE
     Indication: EPILEPSY
     Route: 048
     Dates: start: 20170628, end: 20171014

REACTIONS (4)
  - Off label use [Unknown]
  - Renal hydrocele [Unknown]
  - Nephrolithiasis [Unknown]
  - Product use issue [Unknown]

NARRATIVE: CASE EVENT DATE: 20170628
